FAERS Safety Report 6205868-4 (Version None)
Quarter: 2009Q2

REPORT INFORMATION
  Report Type: 
  Country: None (occurrence: None)
  Receive Date: 20090527
  Receipt Date: 20090508
  Transmission Date: 20091009
  Serious: No
  Sender: FDA-Public Use
  Company Number: US-ABBOTT-09P-163-0572515-00

PATIENT
  Sex: Male
  Weight: 90.8 kg

DRUGS (8)
  1. SIMCOR [Suspect]
     Indication: HIGH DENSITY LIPOPROTEIN DECREASED
     Dosage: 1000/20
     Dates: start: 20080101
  2. NADOLOL [Concomitant]
     Indication: DRUG USE FOR UNKNOWN INDICATION
  3. GABAPENTIN [Concomitant]
     Indication: NEUROPATHY PERIPHERAL
  4. ACTOPLUS MET [Concomitant]
     Indication: OSTEOPOROSIS
     Dosage: 15/500 MG
  5. AVODART [Concomitant]
     Indication: PROSTATIC DISORDER
  6. SPIRIVA [Concomitant]
     Indication: DRUG USE FOR UNKNOWN INDICATION
  7. MICARDIS HCT [Concomitant]
     Indication: BLOOD PRESSURE
     Dosage: 80/25 MG
  8. ASPIRIN [Concomitant]
     Indication: DRUG USE FOR UNKNOWN INDICATION

REACTIONS (3)
  - FLUSHING [None]
  - PAIN OF SKIN [None]
  - PRURITUS [None]
